FAERS Safety Report 14975863 (Version 2)
Quarter: 2018Q2

REPORT INFORMATION
  Report Type: Report from Study
  Country: US (occurrence: US)
  Receive Date: 20180605
  Receipt Date: 20180615
  Transmission Date: 20180711
  Serious: Yes (Death, Other)
  Sender: FDA-Public Use
  Company Number: US-GILEAD-2018-0342243

PATIENT
  Age: 16 Year
  Sex: Male

DRUGS (28)
  1. VENOFER [Concomitant]
     Active Substance: IRON SUCROSE
  2. MEPHYTON [Concomitant]
     Active Substance: PHYTONADIONE
  3. AZTREONAM LYSINE [Suspect]
     Active Substance: AZTREONAM LYSINE
     Indication: CYSTIC FIBROSIS
     Dosage: 75 MG, TID
     Route: 055
     Dates: start: 20170429
  4. AZTREONAM LYSINE [Suspect]
     Active Substance: AZTREONAM LYSINE
     Indication: PSEUDOMONAS INFECTION
  5. GLASSIA [Concomitant]
     Active Substance: .ALPHA.1-PROTEINASE INHIBITOR HUMAN
  6. PULMOZYME [Concomitant]
     Active Substance: DORNASE ALFA
  7. ENOXAPARIN [Concomitant]
     Active Substance: ENOXAPARIN
  8. SPIRONOLACTONE. [Concomitant]
     Active Substance: SPIRONOLACTONE
  9. ZINC SULFATE [Concomitant]
     Active Substance: ZINC SULFATE\ZINC SULFATE ANHYDROUS
  10. ALBUTEROL                          /00139501/ [Concomitant]
     Active Substance: ALBUTEROL
  11. PHILLIPS^ COLON HEALTH [Concomitant]
     Active Substance: PROBIOTICS NOS
  12. VITAMIN A                          /00056001/ [Concomitant]
     Active Substance: RETINOL
  13. ALBUMIN HUMAN [Concomitant]
     Active Substance: ALBUMIN HUMAN
  14. REPLESTA [Concomitant]
     Active Substance: CHOLECALCIFEROL
  15. FUROSEMIDE. [Concomitant]
     Active Substance: FUROSEMIDE
  16. DUOCAL [Concomitant]
  17. OMEGA 3 DHA                        /06822501/ [Concomitant]
  18. OMEPRAZOLE. [Concomitant]
     Active Substance: OMEPRAZOLE
  19. PERTZYE [Concomitant]
     Active Substance: PANCRELIPASE AMYLASE\PANCRELIPASE LIPASE\PANCRELIPASE PROTEASE
  20. HYPERSAL [Concomitant]
  21. IRON;POLYSACCHARIDE-IRON COMPLEX [Concomitant]
  22. ISOPROPYL ALCOHOL. [Concomitant]
     Active Substance: ISOPROPYL ALCOHOL
  23. LACTULOSE. [Concomitant]
     Active Substance: LACTULOSE
  24. URSODIOL. [Concomitant]
     Active Substance: URSODIOL
  25. AZTREONAM LYSINE [Suspect]
     Active Substance: AZTREONAM LYSINE
     Indication: CYSTIC FIBROSIS LUNG
  26. FLONASE                            /00908302/ [Concomitant]
     Active Substance: MOMETASONE FUROATE
  27. VITAMINS                           /00067501/ [Concomitant]
     Active Substance: VITAMINS
  28. TPN [Concomitant]
     Active Substance: AMINO ACIDS\DEXTROSE\ELECTROLYTES NOS\SOYBEAN OIL

REACTIONS (1)
  - Bacteraemia [Fatal]

NARRATIVE: CASE EVENT DATE: 20170513
